FAERS Safety Report 13433964 (Version 2)
Quarter: 2017Q2

REPORT INFORMATION
  Report Type: Spontaneous
  Country: US (occurrence: US)
  Receive Date: 20170413
  Receipt Date: 20170413
  Transmission Date: 20170830
  Serious: Yes (Other)
  Sender: FDA-Public Use
  Company Number: US-BRISTOL-MYERS SQUIBB COMPANY-BMS-2017-030431

PATIENT
  Sex: Male

DRUGS (1)
  1. NIVOLUMAB [Suspect]
     Active Substance: NIVOLUMAB
     Indication: NON-SMALL CELL LUNG CANCER
     Route: 065

REACTIONS (7)
  - Drug ineffective [Unknown]
  - Pneumonia [Unknown]
  - Alveolitis [Unknown]
  - Granuloma [Unknown]
  - Cough [Unknown]
  - Malignant neoplasm progression [Unknown]
  - Dyspnoea [Unknown]
